FAERS Safety Report 12852602 (Version 2)
Quarter: 2016Q4

REPORT INFORMATION
  Report Type: Spontaneous
  Country: US (occurrence: US)
  Receive Date: 20161017
  Receipt Date: 20161101
  Transmission Date: 20170207
  Serious: Yes (Hospitalization)
  Sender: FDA-Public Use
  Company Number: US-ROCHE-1842515

PATIENT
  Age: 42 Year
  Sex: Male
  Weight: 100.79 kg

DRUGS (10)
  1. XOLAIR [Suspect]
     Active Substance: OMALIZUMAB
     Indication: CHRONIC SPONTANEOUS URTICARIA
     Route: 058
  2. PREDNISONE. [Concomitant]
     Active Substance: PREDNISONE
     Indication: URTICARIA
     Route: 048
     Dates: start: 20160729
  3. LORATADINE. [Concomitant]
     Active Substance: LORATADINE
     Indication: URTICARIA
     Route: 048
     Dates: start: 20160816
  4. BENADRYL [Concomitant]
     Active Substance: DIPHENHYDRAMINE HYDROCHLORIDE
     Indication: URTICARIA
     Dosage: AS NEEDED
     Route: 048
  5. CLARITIN (UNITED STATES) [Concomitant]
  6. AMBIEN [Concomitant]
     Active Substance: ZOLPIDEM TARTRATE
  7. ZYRTEC [Concomitant]
     Active Substance: CETIRIZINE HYDROCHLORIDE
     Indication: URTICARIA
     Dosage: AFTERNOON
     Route: 048
     Dates: start: 20160729
  8. XANAX [Concomitant]
     Active Substance: ALPRAZOLAM
     Indication: ANGIOEDEMA
     Route: 048
     Dates: start: 20160823
  9. HYDROXYZINE [Concomitant]
     Active Substance: HYDROXYZINE\HYDROXYZINE HYDROCHLORIDE
     Indication: URTICARIA
     Route: 048
     Dates: start: 20160930
  10. XOLAIR [Suspect]
     Active Substance: OMALIZUMAB
     Route: 058
     Dates: start: 20160729

REACTIONS (1)
  - Suicidal ideation [Recovering/Resolving]

NARRATIVE: CASE EVENT DATE: 20161012
